FAERS Safety Report 20199146 (Version 3)
Quarter: 2022Q1

REPORT INFORMATION
  Report Type: Spontaneous
  Country: BE (occurrence: BE)
  Receive Date: 20211217
  Receipt Date: 20220221
  Transmission Date: 20220424
  Serious: Yes (Hospitalization)
  Sender: FDA-Public Use
  Company Number: BE-CELGENE-BEL-20211203726

PATIENT
  Age: 67 Year
  Sex: Female

DRUGS (10)
  1. REVLIMID [Suspect]
     Active Substance: LENALIDOMIDE
     Indication: Plasma cell myeloma
     Route: 048
     Dates: start: 20211118, end: 20211208
  2. REVLIMID [Suspect]
     Active Substance: LENALIDOMIDE
     Route: 048
     Dates: start: 20220113
  3. CARFILZOMIB [Suspect]
     Active Substance: CARFILZOMIB
     Indication: Plasma cell myeloma
     Route: 065
     Dates: start: 20211118, end: 20211202
  4. CARFILZOMIB [Suspect]
     Active Substance: CARFILZOMIB
     Route: 065
     Dates: start: 20220113
  5. DEXAMETHASONE [Suspect]
     Active Substance: DEXAMETHASONE
     Indication: Plasma cell myeloma
     Dosage: 10 MILLIGRAM
     Route: 065
     Dates: start: 20211118, end: 20211202
  6. DEXAMETHASONE [Suspect]
     Active Substance: DEXAMETHASONE
     Indication: COVID-19
     Dosage: 6 MILLIGRAM
     Route: 048
     Dates: start: 20211208
  7. DEXAMETHASONE [Suspect]
     Active Substance: DEXAMETHASONE
     Dosage: 10 MILLIGRAM
     Route: 065
     Dates: start: 20220113
  8. COVID 19 VACCINE [Concomitant]
     Indication: Prophylaxis
     Route: 065
     Dates: start: 20210429, end: 20210429
  9. COVID 19 VACCINE [Concomitant]
     Route: 065
     Dates: start: 20210603, end: 20210603
  10. COVID 19 VACCINE [Concomitant]
     Route: 065
     Dates: start: 20210930, end: 20210930

REACTIONS (1)
  - COVID-19 [Recovered/Resolved]

NARRATIVE: CASE EVENT DATE: 20211208
